FAERS Safety Report 14077268 (Version 1)
Quarter: 2017Q4

REPORT INFORMATION
  Report Type: Spontaneous
  Country: IN (occurrence: IN)
  Receive Date: 20171012
  Receipt Date: 20171012
  Transmission Date: 20180321
  Serious: No
  Sender: FDA-Public Use
  Company Number: IN-LUPIN PHARMACEUTICALS INC.- E2B_00007179

PATIENT
  Age: 3 Year
  Sex: Female

DRUGS (1)
  1. CEFF [Suspect]
     Active Substance: CEPHALEXIN
     Indication: INFECTION
     Dosage: 5 ML,BID,
     Route: 048
     Dates: start: 20170106, end: 20170110

REACTIONS (2)
  - Diarrhoea [Not Recovered/Not Resolved]
  - Vomiting [Not Recovered/Not Resolved]

NARRATIVE: CASE EVENT DATE: 20170107
